FAERS Safety Report 7161736-5 (Version None)
Quarter: 2010Q4

REPORT INFORMATION
  Report Type: 
  Country: None (occurrence: None)
  Receive Date: 20101215
  Receipt Date: 20101202
  Transmission Date: 20110411
  Serious: Yes (Hospitalization, Other)
  Sender: FDA-Public Use
  Company Number: FR-ELI_LILLY_AND_COMPANY-FR201012000557

PATIENT
  Sex: Male

DRUGS (5)
  1. ZYPREXA [Suspect]
     Dosage: 10 MG, DAILY (1/D)
     Route: 048
     Dates: start: 20070425
  2. ALPRAZOLAM [Concomitant]
     Dosage: 0.5 MG, 3/D
  3. SULFARLEM [Concomitant]
     Dosage: 2 D/F, 3/D
     Route: 048
     Dates: start: 20070425
  4. LEPTICUR [Concomitant]
     Dosage: 10 MG, DAILY (1/D)
     Route: 048
     Dates: start: 20070425
  5. DEROXAT [Concomitant]
     Dosage: 20 MG, DAILY (1/D)
     Route: 048
     Dates: start: 20070425

REACTIONS (7)
  - CHEST PAIN [None]
  - COUGH [None]
  - DECUBITUS ULCER [None]
  - PLEURAL EFFUSION [None]
  - PULMONARY EMBOLISM [None]
  - RESPIRATION ABNORMAL [None]
  - RESPIRATORY DISORDER [None]
